FAERS Safety Report 21050920 (Version 3)
Quarter: 2022Q4

REPORT INFORMATION
  Report Type: Other
  Country: US (occurrence: US)
  Receive Date: 20220707
  Receipt Date: 20221028
  Transmission Date: 20230112
  Serious: Yes (Hospitalization)
  Sender: FDA-Public Use
  Company Number: US-GBT-013789

PATIENT
  Sex: Male

DRUGS (1)
  1. OXBRYTA [Suspect]
     Active Substance: VOXELOTOR
     Indication: Sickle cell disease
     Route: 048

REACTIONS (2)
  - Sickle cell anaemia with crisis [Recovering/Resolving]
  - COVID-19 [Unknown]
